FAERS Safety Report 13243730 (Version 5)
Quarter: 2017Q1

REPORT INFORMATION
  Report Type: Spontaneous
  Country: BR (occurrence: BR)
  Receive Date: 20170216
  Receipt Date: 20170331
  Transmission Date: 20170428
  Serious: Yes (Other)
  Sender: FDA-Public Use
  Company Number: BR-ALLERGAN-1705522US

PATIENT
  Age: 63 Year
  Sex: Female

DRUGS (13)
  1. JUVEDERM VOLUMA XC [Suspect]
     Active Substance: HYALURONIC ACID\LIDOCAINE HYDROCHLORIDE
     Dosage: 0.7 ML, SINGLE
     Route: 058
     Dates: start: 20170116, end: 20170116
  2. JUVEDERM [Suspect]
     Active Substance: HYALURONIC ACID
     Indication: PRODUCT USED FOR UNKNOWN INDICATION
     Dosage: 0.5 ML, SINGLE
     Route: 058
     Dates: start: 20170116, end: 20170116
  3. BOTOX [Suspect]
     Active Substance: ONABOTULINUMTOXINA
     Indication: SKIN WRINKLING
     Dosage: 8 UNITS, SINGLE
     Dates: start: 20170116, end: 20170116
  4. JUVEDERM VOLUMA XC [Suspect]
     Active Substance: HYALURONIC ACID\LIDOCAINE HYDROCHLORIDE
     Dosage: 0.2 ML, SINGLE
     Route: 058
     Dates: start: 20170116, end: 20170116
  5. JUVEDERM VOLUMA XC [Suspect]
     Active Substance: HYALURONIC ACID\LIDOCAINE HYDROCHLORIDE
     Dosage: 0.3 ML, SINGLE
     Route: 058
     Dates: start: 20170116, end: 20170116
  6. JUVEDERM [Suspect]
     Active Substance: HYALURONIC ACID
     Dosage: 0.5 ML, SINGLE
     Route: 058
     Dates: start: 20170116, end: 20170116
  7. JUVEDERM VOLUMA XC [Suspect]
     Active Substance: HYALURONIC ACID\LIDOCAINE HYDROCHLORIDE
     Dosage: 1 ML, SINGLE
     Route: 058
     Dates: start: 20170116, end: 20170116
  8. JUVEDERM VOLUMA XC [Suspect]
     Active Substance: HYALURONIC ACID\LIDOCAINE HYDROCHLORIDE
     Dosage: 0.3 ML, SINGLE
     Route: 058
     Dates: start: 20170116, end: 20170116
  9. JUVEDERM VOLUMA XC [Suspect]
     Active Substance: HYALURONIC ACID\LIDOCAINE HYDROCHLORIDE
     Dosage: 1.0 ML, SINGLE
     Route: 058
     Dates: start: 20170116, end: 20170116
  10. BOTOX [Suspect]
     Active Substance: ONABOTULINUMTOXINA
     Indication: SKIN WRINKLING
     Dosage: 19 UNITS, SINGLE
     Route: 030
     Dates: start: 20170116, end: 20170116
  11. JUVEDERM VOLUMA XC [Suspect]
     Active Substance: HYALURONIC ACID\LIDOCAINE HYDROCHLORIDE
     Indication: PRODUCT USED FOR UNKNOWN INDICATION
     Dosage: 0.2 ML, SINGLE
     Route: 058
     Dates: start: 20170116, end: 20170116
  12. JUVEDERM VOLUMA XC [Suspect]
     Active Substance: HYALURONIC ACID\LIDOCAINE HYDROCHLORIDE
     Dosage: 1 ML, SINGLE
     Route: 058
     Dates: start: 20170116, end: 20170116
  13. JUVEDERM VOLUMA XC [Suspect]
     Active Substance: HYALURONIC ACID\LIDOCAINE HYDROCHLORIDE
     Dosage: 1.3 ML, SINGLE
     Route: 058
     Dates: start: 20170116, end: 20170116

REACTIONS (9)
  - Swelling face [Recovered/Resolved]
  - Suicidal ideation [Recovered/Resolved]
  - Oedema [Recovering/Resolving]
  - Skin mass [Recovered/Resolved]
  - Injection site oedema [Recovering/Resolving]
  - Injection site nodule [Recovered/Resolved]
  - Facial asymmetry [Unknown]
  - Erythema [Recovering/Resolving]
  - Facial pain [Recovering/Resolving]

NARRATIVE: CASE EVENT DATE: 201701
